FAERS Safety Report 5015865-2 (Version None)
Quarter: 2006Q2

REPORT INFORMATION
  Report Type: 
  Country: None (occurrence: None)
  Receive Date: 20060426
  Receipt Date: 20060110
  Transmission Date: 20061013
  Serious: No
  Sender: FDA-Public Use
  Company Number: US164201

PATIENT
  Age: 36 Year
  Sex: Female

DRUGS (9)
  1. SENSIPAR [Suspect]
     Indication: HYPERPARATHYROIDISM SECONDARY
     Dosage: 90 MG, 1 IN 1 DAYS
     Dates: start: 20051001, end: 20060110
  2. VALSARTAN [Concomitant]
  3. CLONIDINE [Concomitant]
  4. LABETALOL [Concomitant]
  5. NIFEDIPINE [Concomitant]
  6. SEVELAMER HCL [Concomitant]
  7. ASPIRIN [Concomitant]
  8. HYDROCODONE [Concomitant]
  9. QUININE SULFATE [Concomitant]

REACTIONS (1)
  - PAIN IN EXTREMITY [None]
